FAERS Safety Report 12252853 (Version 1)
Quarter: 2016Q2

REPORT INFORMATION
  Report Type: Spontaneous
  Country: US (occurrence: None)
  Receive Date: 20160408
  Receipt Date: 20160408
  Transmission Date: 20160815
  Serious: No
  Sender: FDA-Public Use
  Company Number: None

PATIENT
  Age: 39 Year
  Sex: Female

DRUGS (1)
  1. HUMIRA [Suspect]
     Active Substance: ADALIMUMAB
     Indication: RHEUMATOID ARTHRITIS
     Route: 058

REACTIONS (11)
  - Pain [None]
  - Swelling [None]
  - Fatigue [None]
  - Oedema [None]
  - Pruritus [None]
  - Tenderness [None]
  - Erythema [None]
  - Joint stiffness [None]
  - Arthralgia [None]
  - Rash [None]
  - Skin warm [None]

NARRATIVE: CASE EVENT DATE: 20160406
